FAERS Safety Report 8912837 (Version 3)
Quarter: 2012Q4

REPORT INFORMATION
  Report Type: 
  Country: DE (occurrence: DE)
  Receive Date: 20121116
  Receipt Date: 20121226
  Transmission Date: 20130627
  Serious: Yes (Hospitalization)
  Sender: FDA-Public Use
  Company Number: DE-JNJFOC-20121105376

PATIENT
  Age: 17 Year
  Sex: Male
  Weight: 128 kg

DRUGS (4)
  1. REMICADE [Suspect]
     Indication: CROHN^S DISEASE
     Route: 042
     Dates: start: 201111
  2. REMICADE [Suspect]
     Indication: CROHN^S DISEASE
     Dosage: third dose
     Route: 042
     Dates: start: 20121107, end: 20121107
  3. REMICADE [Suspect]
     Indication: CROHN^S DISEASE
     Route: 042
     Dates: start: 2011
  4. PREDNISONE [Concomitant]
     Indication: CROHN^S DISEASE
     Route: 065
     Dates: start: 201108

REACTIONS (2)
  - Nerve root lesion [Recovered/Resolved]
  - Vitamin B12 deficiency [Unknown]
